FAERS Safety Report 9767502 (Version 1)
Quarter: 2013Q4

REPORT INFORMATION
  Report Type: Spontaneous
  Country: US (occurrence: None)
  Receive Date: 20131213
  Receipt Date: 20131213
  Transmission Date: 20140711
  Serious: Yes (Other)
  Sender: FDA-Public Use
  Company Number: 2013SA026057

PATIENT
  Age: 46 Year
  Sex: Female

DRUGS (1)
  1. CAPZASIN HP CREME / UNKNOWN / UNKNOWN [Suspect]
     Indication: PRODUCT USED FOR UNKNOWN INDICATION
     Dosage: UNKNOWN, TOPICAL
     Route: 061
     Dates: start: 20110303, end: 20110303

REACTIONS (3)
  - Application site burn [None]
  - Blister [None]
  - Pain [None]
